FAERS Safety Report 7231628-1 (Version None)
Quarter: 2011Q1

REPORT INFORMATION
  Report Type: 
  Country: None (occurrence: None)
  Receive Date: 20110118
  Receipt Date: 20110106
  Transmission Date: 20110831
  Serious: Yes (Hospitalization, Other)
  Sender: FDA-Public Use
  Company Number: US-PFIZER INC-2010140777

PATIENT
  Sex: Female

DRUGS (6)
  1. CHANTIX [Suspect]
     Indication: SMOKING CESSATION THERAPY
     Dosage: STARTER PACK (0.5-1MG)
     Dates: start: 20070801, end: 20071101
  2. WELLBUTRIN [Concomitant]
     Indication: SMOKING CESSATION THERAPY
     Dosage: UNK
     Dates: start: 20010101, end: 20100101
  3. ABILIFY [Concomitant]
     Indication: DEPRESSION
     Dosage: UNK
     Dates: start: 20040101, end: 20100101
  4. ADDERALL 10 [Concomitant]
     Dosage: UNK
     Dates: start: 20050101, end: 20090101
  5. WELLBUTRIN [Concomitant]
     Indication: DEPRESSION
  6. XANAX [Concomitant]
     Indication: ANXIETY
     Dosage: UNK
     Dates: start: 19920101

REACTIONS (7)
  - ANXIETY [None]
  - BLOOD ALCOHOL INCREASED [None]
  - HOSTILITY [None]
  - PARANOIA [None]
  - DEPRESSION [None]
  - MOOD SWINGS [None]
  - SUICIDE ATTEMPT [None]
